FAERS Safety Report 6732494-0 (Version None)
Quarter: 2010Q2

REPORT INFORMATION
  Report Type: 
  Country: None (occurrence: None)
  Receive Date: 20100519
  Receipt Date: 20100513
  Transmission Date: 20101027
  Serious: Yes (Life-Threatening)
  Sender: FDA-Public Use
  Company Number: GB-ELI_LILLY_AND_COMPANY-GB201005003072

PATIENT
  Age: 65 Year
  Sex: Female
  Weight: 95.6 kg

DRUGS (1)
  1. BYETTA [Suspect]
     Indication: DIABETES MELLITUS
     Dosage: 5 UG, UNKNOWN
     Route: 058
     Dates: start: 20100310, end: 20100310

REACTIONS (4)
  - CHEST DISCOMFORT [None]
  - HEADACHE [None]
  - PARAESTHESIA ORAL [None]
  - SWOLLEN TONGUE [None]
